FAERS Safety Report 7067694-6 (Version None)
Quarter: 2010Q4

REPORT INFORMATION
  Report Type: 
  Country: None (occurrence: None)
  Receive Date: 20101028
  Receipt Date: 20101015
  Transmission Date: 20110411
  Serious: Yes (Other)
  Sender: FDA-Public Use
  Company Number: PHHY2010AR70328

PATIENT
  Sex: Male

DRUGS (3)
  1. CLOZAPINE [Suspect]
     Dosage: UNK
     Dates: start: 20060101, end: 20090101
  2. CLOZAPINE [Suspect]
     Dosage: UNK
     Dates: start: 20100101
  3. PALIPERIDONE [Concomitant]

REACTIONS (7)
  - DRY SKIN [None]
  - ERYTHEMA [None]
  - HYPERSENSITIVITY [None]
  - SCAB [None]
  - SKIN DEPIGMENTATION [None]
  - SKIN EXFOLIATION [None]
  - SWELLING FACE [None]
